FAERS Safety Report 6180536-6 (Version None)
Quarter: 2009Q2

REPORT INFORMATION
  Report Type: 
  Country: None (occurrence: None)
  Receive Date: 20090504
  Receipt Date: 20090504
  Transmission Date: 20091009
  Serious: Yes (Hospitalization)
  Sender: FDA-Public Use
  Company Number: None

PATIENT
  Age: 3 Year
  Sex: Male
  Weight: 15.8759 kg

DRUGS (1)
  1. SCOPE MOUTHWASH, ORIGINAL MINT FLAVOR ETHANOL 15%, CETYLPYRIDINIUM CHL [Suspect]
     Dosage: 120ML-180ML, 1 ONLY
     Route: 048
     Dates: start: 20090208

REACTIONS (7)
  - ACCIDENTAL DRUG INTAKE BY CHILD [None]
  - BLOOD ALCOHOL INCREASED [None]
  - BLOOD GLUCOSE DECREASED [None]
  - FALL [None]
  - HYPOTONIA [None]
  - SOMNOLENCE [None]
  - UNRESPONSIVE TO STIMULI [None]
